FAERS Safety Report 5243932-7 (Version None)
Quarter: 2007Q1

REPORT INFORMATION
  Report Type: 
  Country: None (occurrence: None)
  Receive Date: 20070222
  Receipt Date: 20070212
  Transmission Date: 20070707
  Serious: Yes (Other)
  Sender: FDA-Public Use
  Company Number: US-ELI_LILLY_AND_COMPANY-US200603004602

PATIENT
  Sex: Female
  Weight: 119.73 kg

DRUGS (1)
  1. ZYPREXA [Suspect]
     Indication: BIPOLAR DISORDER
     Dosage: 5 MG, UNK
     Dates: start: 20010501, end: 20040801

REACTIONS (2)
  - CATHETERISATION CARDIAC [None]
  - DIABETES MELLITUS NON-INSULIN-DEPENDENT [None]
